FAERS Safety Report 6081032-7 (Version None)
Quarter: 2009Q1

REPORT INFORMATION
  Report Type: 
  Country: None (occurrence: None)
  Receive Date: 20090217
  Receipt Date: 20090210
  Transmission Date: 20090719
  Serious: Yes (Other)
  Sender: FDA-Public Use
  Company Number: PHHY2009FR05057

PATIENT
  Age: 35 Year
  Sex: Male

DRUGS (10)
  1. SANDIMMUNE [Suspect]
     Indication: STEM CELL TRANSPLANT
     Dosage: 3 MG/KG
     Dates: start: 20081111
  2. SANDIMMUNE [Suspect]
     Dosage: 2 MG/KG
  3. CELLCEPT [Suspect]
     Indication: STEM CELL TRANSPLANT
     Dosage: 750 MG, TID
     Dates: start: 20081113
  4. DIMETHYL SULFOXIDE [Suspect]
     Dosage: UNK
     Dates: start: 20081114, end: 20081114
  5. ARIXTRA [Concomitant]
     Dosage: 1 INJECTION PER DAY
  6. BACTRIM DS [Concomitant]
  7. GRANOCYTE [Concomitant]
     Dosage: 7 DAYS PER MONTH
  8. ENDOXAN [Concomitant]
     Indication: BONE MARROW TRANSPLANT
  9. ANTILYMPHOCYTE SERUM [Concomitant]
  10. RADIOTHERAPY [Concomitant]

REACTIONS (1)
  - HYPERTENSIVE CRISIS [None]
